FAERS Safety Report 23805712 (Version 3)
Quarter: 2025Q2

REPORT INFORMATION
  Report Type: Spontaneous
  Country: BG (occurrence: BG)
  Receive Date: 20240502
  Receipt Date: 20250522
  Transmission Date: 20250717
  Serious: Yes (Other)
  Sender: NOVARTIS
  Company Number: BG-SANDOZ-SDZ2024BG040853

PATIENT
  Age: 76 Year
  Sex: Male

DRUGS (3)
  1. BISOPROLOL FUMARATE [Suspect]
     Active Substance: BISOPROLOL FUMARATE
     Indication: Hypertension
     Dosage: UNK, BID (HALF A TABLET TWICE DAILY)
     Route: 065
  2. HYDROCHLOROTHIAZIDE\VALSARTAN [Suspect]
     Active Substance: HYDROCHLOROTHIAZIDE\VALSARTAN
     Indication: Hypertension
     Dosage: UNK, QD 160 MG/12.5 MG ADMINISTRATED ONCE IN THE MORNING FOR THE PAST 10 YEARS (IN THE MORNING)
     Route: 065
  3. VALSARTAN [Suspect]
     Active Substance: VALSARTAN
     Indication: Hypertension
     Dosage: 160 MG, QD (ONCE IN THE MORNING)
     Route: 065

REACTIONS (3)
  - Nodular melanoma [Unknown]
  - Suspected product contamination [Unknown]
  - Poor quality product administered [Unknown]
